FAERS Safety Report 7280718-6 (Version None)
Quarter: 2011Q1

REPORT INFORMATION
  Report Type: 
  Country: None (occurrence: None)
  Receive Date: 20110208
  Receipt Date: 20110202
  Transmission Date: 20110831
  Serious: Yes (Life-Threatening)
  Sender: FDA-Public Use
  Company Number: B0698048A

PATIENT
  Sex: Female

DRUGS (1)
  1. AUGMENTIN '125' [Suspect]
     Route: 042
     Dates: start: 20110102, end: 20110102

REACTIONS (4)
  - BRONCHOSPASM [None]
  - RASH [None]
  - OXYGEN SATURATION DECREASED [None]
  - HYPOTENSION [None]
